FAERS Safety Report 8133341-5 (Version None)
Quarter: 2012Q1

REPORT INFORMATION
  Report Type: 
  Country: None (occurrence: None)
  Receive Date: 20120213
  Receipt Date: 20120131
  Transmission Date: 20120608
  Serious: Yes (Hospitalization, Other)
  Sender: FDA-Public Use
  Company Number: US-ACTELION-A-NJ2011-55770

PATIENT

DRUGS (16)
  1. ASPIRIN [Concomitant]
  2. PERCOCET [Concomitant]
  3. PROTONIX [Concomitant]
  4. SILVER SULFADIAZINE [Concomitant]
  5. TRACLEER [Suspect]
     Dosage: 62.5 MG, BID
     Route: 048
     Dates: start: 20100610, end: 20100819
  6. TRACLEER [Suspect]
     Indication: PULMONARY ARTERIAL HYPERTENSION
     Dosage: 125 MG, BID
     Route: 048
     Dates: start: 20100820
  7. VITAMIN K TAB [Concomitant]
  8. DILTIAZEM HCL [Concomitant]
  9. LIPITOR [Concomitant]
  10. NEPHROCAPS [Concomitant]
  11. RENVELA [Concomitant]
  12. LISINOPRIL [Concomitant]
  13. COUMADIN [Concomitant]
  14. AGGRENOX [Concomitant]
  15. SENSIPAR [Concomitant]
  16. TOPROL-XL [Concomitant]

REACTIONS (11)
  - BLOOD BILIRUBIN INCREASED [None]
  - ABDOMINAL PAIN [None]
  - ASPARTATE AMINOTRANSFERASE INCREASED [None]
  - RENAL FAILURE [None]
  - PERITONEAL DIALYSIS [None]
  - LIVER FUNCTION TEST ABNORMAL [None]
  - BLOOD ALKALINE PHOSPHATASE INCREASED [None]
  - OEDEMA PERIPHERAL [None]
  - ALANINE AMINOTRANSFERASE INCREASED [None]
  - DIARRHOEA [None]
  - ARTERIOVENOUS GRAFT SITE INFECTION [None]
